FAERS Safety Report 9681087 (Version 1)
Quarter: 2013Q4

REPORT INFORMATION
  Report Type: Spontaneous
  Country: US (occurrence: None)
  Receive Date: 20131108
  Receipt Date: 20131108
  Transmission Date: 20140711
  Serious: No
  Sender: FDA-Public Use
  Company Number: None

PATIENT
  Age: 66 Year
  Sex: Female
  Weight: 60.33 kg

DRUGS (1)
  1. ALBUTEROL SULFATE [Suspect]
     Indication: CHRONIC OBSTRUCTIVE PULMONARY DISEASE
     Dosage: ONE VIAL EVERT4 HOURS AS NEEDE, FOUR TIMES DAILY, INHALATION
     Route: 055
     Dates: start: 20131001, end: 20131022

REACTIONS (2)
  - Malaise [None]
  - Poor quality drug administered [None]
